FAERS Safety Report 19082120 (Version 1)
Quarter: 2021Q2

REPORT INFORMATION
  Report Type: Spontaneous
  Country: US (occurrence: US)
  Receive Date: 20210401
  Receipt Date: 20210401
  Transmission Date: 20210717
  Serious: No
  Sender: FDA-Public Use
  Company Number: US-PFIZER INC-2020189489

PATIENT
  Age: 6 Year
  Sex: Male

DRUGS (2)
  1. GENOTROPIN [Suspect]
     Active Substance: SOMATROPIN
     Dosage: 0.8 MG, DAILY
     Dates: start: 202007
  2. GENOTROPIN [Suspect]
     Active Substance: SOMATROPIN
     Indication: NOONAN SYNDROME
     Dosage: 0.7 MG

REACTIONS (5)
  - Product prescribing error [Unknown]
  - Off label use [Unknown]
  - Product dose omission issue [Unknown]
  - Product communication issue [Unknown]
  - Wrong technique in device usage process [Unknown]
